FAERS Safety Report 16689451 (Version 1)
Quarter: 2019Q3

REPORT INFORMATION
  Report Type: Spontaneous
  Country: US (occurrence: US)
  Receive Date: 20190809
  Receipt Date: 20190809
  Transmission Date: 20191004
  Serious: No
  Sender: FDA-Public Use
  Company Number: US-TEVA-2019-US-1088189

PATIENT
  Sex: Female

DRUGS (1)
  1. MEFLOQUINE HYDROCHLORIDE TABLET [Suspect]
     Active Substance: MEFLOQUINE HYDROCHLORIDE
     Indication: MALARIA PROPHYLAXIS
     Dosage: ONE PILL EACH DAY
     Route: 065
     Dates: start: 20190729, end: 20190801

REACTIONS (3)
  - Depressed mood [Unknown]
  - Fatigue [Unknown]
  - Abdominal pain upper [Unknown]

NARRATIVE: CASE EVENT DATE: 20190729
